FAERS Safety Report 9093632 (Version 1)
Quarter: 2013Q1

REPORT INFORMATION
  Report Type: Spontaneous
  Country: US (occurrence: None)
  Receive Date: 20130213
  Receipt Date: 20130213
  Transmission Date: 20140127
  Serious: Yes (Other)
  Sender: FDA-Public Use
  Company Number: None

PATIENT
  Age: 62 Year
  Sex: Female
  Weight: 49.9 kg

DRUGS (3)
  1. CYMBALTA [Suspect]
     Indication: PAIN
  2. CYMBALTA [Suspect]
     Indication: ANXIETY
  3. CYMBALTA [Suspect]
     Indication: DEPRESSION

REACTIONS (7)
  - Dizziness [None]
  - Headache [None]
  - Pain [None]
  - Palpitations [None]
  - Mouth ulceration [None]
  - Insomnia [None]
  - Fall [None]
